FAERS Safety Report 24788585 (Version 1)
Quarter: 2024Q4

REPORT INFORMATION
  Report Type: Spontaneous
  Country: PT (occurrence: PT)
  Receive Date: 20241230
  Receipt Date: 20241230
  Transmission Date: 20250115
  Serious: Yes (Hospitalization, Other)
  Sender: ACCORD
  Company Number: PT-MLMSERVICE-20241216-PI294244-00255-3

PATIENT
  Age: 33 Year
  Sex: Female

DRUGS (6)
  1. PACLITAXEL [Suspect]
     Active Substance: PACLITAXEL
     Indication: Neuroendocrine carcinoma of the cervix
     Dosage: 175 MG/M2 EVERY 21 DAYS;  PATIENT COMPLETED A TOTAL OF THREE CYCLES
  2. TOPOTECAN [Suspect]
     Active Substance: TOPOTECAN HYDROCHLORIDE
     Indication: Neuroendocrine carcinoma of the cervix
     Dosage: 0.75 MG/M2, EVERY 21 DAYS; PATIENT COMPLETED A TOTAL OF THREE CYCLES
  3. BEVACIZUMAB [Suspect]
     Active Substance: BEVACIZUMAB
     Indication: Neuroendocrine carcinoma of the cervix
     Dosage: 15 MG/KG EVERY 21 DAYS; PATIENT COMPLETED A TOTAL OF THREE CYCLES
  4. TOPOTECAN [Suspect]
     Active Substance: TOPOTECAN HYDROCHLORIDE
     Indication: Metastases to breast
     Dosage: 0.75 MG/M2, EVERY 21 DAYS; PATIENT COMPLETED A TOTAL OF THREE CYCLES
  5. PACLITAXEL [Suspect]
     Active Substance: PACLITAXEL
     Indication: Metastases to breast
     Dosage: 175 MG/M2 EVERY 21 DAYS;  PATIENT COMPLETED A TOTAL OF THREE CYCLES
  6. BEVACIZUMAB [Suspect]
     Active Substance: BEVACIZUMAB
     Indication: Metastases to breast
     Dosage: 15 MG/KG EVERY 21 DAYS; PATIENT COMPLETED A TOTAL OF THREE CYCLES

REACTIONS (1)
  - Skin toxicity [Unknown]
